FAERS Safety Report 8393040-1 (Version None)
Quarter: 2012Q1

REPORT INFORMATION
  Report Type: 
  Country: None (occurrence: None)
  Receive Date: 20120323
  Receipt Date: 20110301
  Transmission Date: 20120608
  Serious: Yes (Other)
  Sender: FDA-Public Use
  Company Number: 163-21880-11030417

PATIENT
  Age: 58 Year
  Sex: Female
  Weight: 103.8737 kg

DRUGS (13)
  1. ACYCLOVIR [Concomitant]
  2. DECADRON [Concomitant]
  3. SYNTHROID [Concomitant]
  4. REVLIMID [Suspect]
     Indication: MULTIPLE MYELOMA
     Dosage: 25 MG, FOR 14 DAYS, PO
     Route: 048
     Dates: start: 20101201
  5. ZOFRAN [Concomitant]
  6. ALLOPURINOL [Concomitant]
  7. ESTRADIOL [Concomitant]
  8. TRIMETHOPRIM [Concomitant]
  9. VELCADE [Concomitant]
  10. OXYCODONE HYDROCHLORIDE [Concomitant]
  11. ASPIRIN [Concomitant]
  12. CALCIUM [Concomitant]
  13. VITAMIN D [Concomitant]

REACTIONS (3)
  - PULMONARY EMBOLISM [None]
  - DEEP VEIN THROMBOSIS [None]
  - RASH [None]
